FAERS Safety Report 25031822 (Version 1)
Quarter: 2025Q1

REPORT INFORMATION
  Report Type: Spontaneous
  Country: CN (occurrence: CN)
  Receive Date: 20250303
  Receipt Date: 20250303
  Transmission Date: 20250409
  Serious: Yes (Hospitalization)
  Sender: PUMA
  Company Number: CN-PUMA BIOTECHNOLOGY, INC.-2025-PUM-CN000330

PATIENT

DRUGS (3)
  1. NERLYNX [Suspect]
     Active Substance: NERATINIB
     Indication: Breast cancer
     Dosage: 120 MG, DAILY
     Route: 048
     Dates: start: 20250113, end: 20250119
  2. NERLYNX [Suspect]
     Active Substance: NERATINIB
     Dosage: 160 MG, DAILY
     Route: 048
     Dates: start: 20250120, end: 20250126
  3. NERLYNX [Suspect]
     Active Substance: NERATINIB
     Dosage: 240 MG, DAILY
     Route: 048
     Dates: start: 20250127, end: 20250216

REACTIONS (2)
  - Hepatic function abnormal [Recovering/Resolving]
  - Drug titration error [Unknown]

NARRATIVE: CASE EVENT DATE: 20250113
